FAERS Safety Report 22338165 (Version 1)
Quarter: 2023Q2

REPORT INFORMATION
  Report Type: Spontaneous
  Country: US (occurrence: None)
  Receive Date: 20230517
  Receipt Date: 20230517
  Transmission Date: 20230721
  Serious: Yes (Death)
  Sender: FDA-Public Use
  Company Number: None

PATIENT
  Sex: Male

DRUGS (2)
  1. BOTOX [Suspect]
     Active Substance: ONABOTULINUMTOXINA
     Indication: Hemiplegia
     Dosage: OTHER QUANTITY : 100 UNIT;?FREQUENCY : AS DIRECTED;?
     Route: 030
     Dates: start: 20230307
  2. BOTOX [Suspect]
     Active Substance: ONABOTULINUMTOXINA
     Indication: Hemiplegia

REACTIONS (1)
  - Death [None]
